FAERS Safety Report 9693957 (Version 1)
Quarter: 2013Q4

REPORT INFORMATION
  Report Type: Spontaneous
  Country: DE (occurrence: DE)
  Receive Date: 20131118
  Receipt Date: 20131118
  Transmission Date: 20140711
  Serious: Yes (Hospitalization, Disabling)
  Sender: FDA-Public Use
  Company Number: DE-TEVA-444178GER

PATIENT
  Age: 58 Year
  Sex: Female
  Weight: 71 kg

DRUGS (3)
  1. CLOPIDOGREL [Suspect]
     Indication: OPTIC ISCHAEMIC NEUROPATHY
     Dosage: 75 MILLIGRAM DAILY;
     Dates: start: 2010
  2. TRENTAL [Concomitant]
     Indication: OPTIC ISCHAEMIC NEUROPATHY
     Dates: start: 2010
  3. ASS 100 [Concomitant]
     Indication: OPTIC ISCHAEMIC NEUROPATHY
     Dates: start: 2010

REACTIONS (1)
  - Alveolitis allergic [Not Recovered/Not Resolved]
